FAERS Safety Report 9090132 (Version 1)
Quarter: 2013Q1

REPORT INFORMATION
  Report Type: Report from Study
  Country: US (occurrence: US)
  Receive Date: 20130131
  Receipt Date: 20130131
  Transmission Date: 20140127
  Serious: No
  Sender: FDA-Public Use
  Company Number: US-ABBOTT-12P-163-1006005-00

PATIENT
  Age: 75 Year
  Sex: Female

DRUGS (4)
  1. IRON [Concomitant]
     Indication: PRODUCT USED FOR UNKNOWN INDICATION
  2. HUMIRA [Suspect]
     Indication: CROHN^S DISEASE
  3. ASACOL [Concomitant]
     Indication: CROHN^S DISEASE
  4. CALCIUM [Concomitant]
     Indication: PRODUCT USED FOR UNKNOWN INDICATION

REACTIONS (4)
  - Diarrhoea [Unknown]
  - Inappropriate schedule of drug administration [Unknown]
  - Inflammation [Not Recovered/Not Resolved]
  - Condition aggravated [Unknown]
